FAERS Safety Report 6795400-9 (Version None)
Quarter: 2010Q2

REPORT INFORMATION
  Report Type: 
  Country: None (occurrence: None)
  Receive Date: 20100520
  Receipt Date: 20090713
  Transmission Date: 20101027
  Serious: Yes (Disabling, Other)
  Sender: FDA-Public Use
  Company Number: 2009239652

PATIENT
  Age: 56 Year
  Sex: Female
  Weight: 102 kg

DRUGS (9)
  1. PROVERA [Suspect]
     Indication: HORMONE REPLACEMENT THERAPY
     Dosage: ORAL
     Route: 048
     Dates: start: 19921201, end: 19990601
  2. ESTRACE [Suspect]
     Indication: HORMONE REPLACEMENT THERAPY
     Dosage: 1 MG
     Dates: start: 19930101, end: 19930201
  3. PREMPRO [Suspect]
     Indication: HORMONE REPLACEMENT THERAPY
     Dates: start: 19980101, end: 20001003
  4. PREMPHASE (PREMARIN;CYCRIN 14/14) [Suspect]
     Indication: HORMONE REPLACEMENT THERAPY
     Dates: start: 19980101, end: 19990201
  5. ESTRATAB [Suspect]
     Indication: HORMONE REPLACEMENT THERAPY
     Dosage: 0.3 MG
     Dates: start: 19980501, end: 20001001
  6. PREMARIN [Suspect]
     Indication: HORMONE REPLACEMENT THERAPY
  7. PROMETRIUM [Suspect]
     Indication: HORMONE REPLACEMENT THERAPY
     Dosage: 100 MG
     Dates: start: 19990401, end: 20001001
  8. PROGESTERONE [Suspect]
     Indication: HORMONE REPLACEMENT THERAPY
  9. MICRONOR [Suspect]
     Indication: HORMONE REPLACEMENT THERAPY
     Dates: start: 19991201, end: 20001001

REACTIONS (1)
  - BREAST CANCER FEMALE [None]
